FAERS Safety Report 8758448 (Version 2)
Quarter: 2012Q4

REPORT INFORMATION
  Report Type: 
  Country: US (occurrence: US)
  Receive Date: 20120829
  Receipt Date: 20120919
  Transmission Date: 20130627
  Serious: Yes (Hospitalization, Other)
  Sender: FDA-Public Use
  Company Number: US-SANOFI-AVENTIS-2012SA055680

PATIENT
  Age: 73 None
  Sex: Female
  Weight: 126.36 kg

DRUGS (14)
  1. LOVENOX [Suspect]
     Indication: CLOT BLOOD
     Route: 058
     Dates: start: 20120718, end: 20120722
  2. LOVENOX [Suspect]
     Indication: PULMONARY EMBOLISM
     Route: 058
     Dates: start: 20120718, end: 20120722
  3. LOVENOX [Suspect]
     Indication: CLOT BLOOD
     Route: 058
     Dates: start: 201207
  4. LOVENOX [Suspect]
     Indication: PULMONARY EMBOLISM
     Route: 058
     Dates: start: 201207
  5. LOVENOX [Suspect]
     Indication: CLOT BLOOD
  6. LOVENOX [Suspect]
     Indication: PULMONARY EMBOLISM
  7. ASPIRIN [Suspect]
     Route: 065
     Dates: start: 200909
  8. WARFARIN [Suspect]
     Indication: ANTIPLATELET THERAPY
     Route: 065
     Dates: start: 201205
  9. HYDROCODONE [Concomitant]
     Indication: CHRONIC PAIN
     Dosage: 5/325, 2 tablets every 6 hours
     Dates: start: 201104
  10. GABAPENTIN [Concomitant]
     Indication: NEUROGENIC PAIN
     Dates: start: 201202
  11. TRIMETHOPRIM [Concomitant]
     Indication: RECURRENT URINARY TRACT INFECTION
     Dates: start: 201205
  12. METOPROLOL [Concomitant]
     Indication: ATRIAL FIBRILLATION
     Dates: start: 200909
  13. ISOSORBIDE [Concomitant]
     Indication: STENT PLACEMENT
  14. LISINOPRIL [Concomitant]
     Indication: BLOOD PRESSURE
     Dates: start: 201106

REACTIONS (6)
  - Chest pain [Unknown]
  - Haematoma [Not Recovered/Not Resolved]
  - Pain [Not Recovered/Not Resolved]
  - Haemarthrosis [Not Recovered/Not Resolved]
  - Intra-abdominal haematoma [Unknown]
  - Amnesia [Unknown]
